FAERS Safety Report 15704380 (Version 1)
Quarter: 2018Q4

REPORT INFORMATION
  Report Type: Spontaneous
  Country: IT (occurrence: IT)
  Receive Date: 20181210
  Receipt Date: 20181210
  Transmission Date: 20190205
  Serious: Yes (Hospitalization)
  Sender: FDA-Public Use
  Company Number: IT-TEVA-2018-IT-985812

PATIENT
  Age: 5 Decade
  Sex: Male

DRUGS (5)
  1. CYTARABINE. [Concomitant]
     Active Substance: CYTARABINE
     Indication: HAEMATOPOIETIC STEM CELL MOBILISATION
     Dosage: HIGH DOSE; AS A PART OF DHAP COURSE
     Route: 065
     Dates: start: 20160415
  2. DACLATASVIR. [Concomitant]
     Active Substance: DACLATASVIR
     Indication: HEPATITIS C
     Route: 048
     Dates: start: 20160323, end: 20160907
  3. DEXAMETHASONE. [Concomitant]
     Active Substance: DEXAMETHASONE
     Indication: HAEMATOPOIETIC STEM CELL MOBILISATION
     Dosage: AS A PART OF DHAP COURSE
     Route: 065
     Dates: start: 20160415
  4. CISPLATIN. [Suspect]
     Active Substance: CISPLATIN
     Indication: HAEMATOPOIETIC STEM CELL MOBILISATION
     Dosage: 173MG; AS A PART OF DHAP COURSE
     Route: 065
     Dates: start: 20160415
  5. SOFOSBUVIR [Interacting]
     Active Substance: SOFOSBUVIR
     Indication: HEPATITIS C
     Route: 048
     Dates: start: 20160323, end: 20160907

REACTIONS (4)
  - Drug interaction [Recovering/Resolving]
  - Hypomagnesaemia [Unknown]
  - Acute kidney injury [Recovering/Resolving]
  - Hypokalaemia [Unknown]

NARRATIVE: CASE EVENT DATE: 2016
